FAERS Safety Report 25956843 (Version 1)
Quarter: 2025Q4

REPORT INFORMATION
  Report Type: Spontaneous
  Country: US (occurrence: None)
  Receive Date: 20251023
  Receipt Date: 20251023
  Transmission Date: 20260118
  Serious: No
  Sender: FDA-CTU
  Company Number: None

PATIENT
  Age: 56 Year
  Sex: Male

DRUGS (1)
  1. XTANDI [Suspect]
     Active Substance: ENZALUTAMIDE
     Dosage: FREQUENCY : DAILY;?
     Route: 048
     Dates: start: 20250630

REACTIONS (2)
  - Dysuria [None]
  - Urinary tract infection [None]

NARRATIVE: CASE EVENT DATE: 20251023
